FAERS Safety Report 10192797 (Version 1)
Quarter: 2014Q2

REPORT INFORMATION
  Report Type: Spontaneous
  Country: IT (occurrence: IT)
  Receive Date: 20140523
  Receipt Date: 20140523
  Transmission Date: 20141212
  Serious: Yes (Death)
  Sender: FDA-Public Use
  Company Number: PHHY2014IT061941

PATIENT
  Age: 50 Year
  Sex: Male

DRUGS (1)
  1. CITALOPRAM [Suspect]
     Dosage: 1 DF, ONCE/SINGLE
     Route: 048

REACTIONS (1)
  - Death [Fatal]
